FAERS Safety Report 5555555-0 (Version None)
Quarter: 2007Q4

REPORT INFORMATION
  Report Type: 
  Country: None (occurrence: None)
  Receive Date: 20071213
  Receipt Date: 20070822
  Transmission Date: 20080405
  Serious: No
  Sender: FDA-Public Use
  Company Number: US-AMGEN-KDL237236

PATIENT
  Sex: Female

DRUGS (3)
  1. ENBREL [Suspect]
     Indication: PSORIATIC ARTHROPATHY
     Route: 058
     Dates: start: 20050401
  2. ENBREL [Suspect]
     Indication: PSORIASIS
  3. TRAMADOL HCL [Concomitant]

REACTIONS (7)
  - ADVERSE DRUG REACTION [None]
  - DIZZINESS [None]
  - INJECTION SITE IRRITATION [None]
  - NAUSEA [None]
  - PAIN [None]
  - PSORIASIS [None]
  - VOMITING [None]
